FAERS Safety Report 8011271 (Version 4)
Quarter: 2013Q2

REPORT INFORMATION
  Report Type: Spontaneous
  Country: US (occurrence: US)
  Receive Date: 20110627
  Receipt Date: 20130501
  Transmission Date: 20140414
  Serious: Yes (Hospitalization, Disabling)
  Sender: FDA-Public Use
  Company Number: US-BAYER-2011-053843

PATIENT
  Age: 29 Year
  Sex: Female
  Weight: 63.49 kg

DRUGS (9)
  1. YAZ [Suspect]
     Indication: CONTRACEPTION
     Dosage: UNK
     Dates: start: 2006, end: 2007
  2. YASMIN [Suspect]
     Indication: CONTRACEPTION
     Dosage: UNK
     Dates: start: 2006, end: 2007
  3. OCELLA [Suspect]
     Indication: CONTRACEPTION
     Dosage: UNK
     Dates: start: 200901, end: 200906
  4. METHYLPREDNISOLON [Concomitant]
     Dosage: UNK
     Route: 048
     Dates: start: 20090427
  5. AMOX [Concomitant]
     Dosage: UNK
     Route: 048
     Dates: start: 20090505
  6. APAP [Concomitant]
     Dosage: 300-30 MG TAB
     Route: 048
     Dates: start: 20090505
  7. ZYRTEC [Concomitant]
     Dosage: UNK
     Route: 048
     Dates: start: 20090606
  8. ZANTAC [Concomitant]
     Dosage: UNK
     Route: 048
  9. AUGMENTIN [Concomitant]

REACTIONS (7)
  - Pulmonary embolism [Unknown]
  - Deep vein thrombosis [Unknown]
  - Thrombosis [Unknown]
  - Injury [Unknown]
  - Pain [Unknown]
  - Anxiety [Unknown]
  - Anhedonia [Unknown]
